FAERS Safety Report 18339476 (Version 3)
Quarter: 2021Q1

REPORT INFORMATION
  Report Type: Other
  Country: DE (occurrence: DE)
  Receive Date: 20201002
  Receipt Date: 20210320
  Transmission Date: 20210419
  Serious: Yes (Hospitalization)
  Sender: FDA-Public Use
  Company Number: DE-ROCHE-2687976

PATIENT
  Age: 54 Year
  Sex: Male

DRUGS (4)
  1. TOCILIZUMAB. [Suspect]
     Active Substance: TOCILIZUMAB
     Indication: RHEUMATOID ARTHRITIS
     Route: 058
     Dates: start: 201804
  2. CERTOLIZUMAB PEGOL [Suspect]
     Active Substance: CERTOLIZUMAB PEGOL
     Indication: RHEUMATOID ARTHRITIS
     Route: 065
     Dates: start: 201802, end: 201804
  3. METHOTREXATE. [Suspect]
     Active Substance: METHOTREXATE
     Indication: RHEUMATOID ARTHRITIS
     Route: 065
  4. LEFLUNOMIDE. [Suspect]
     Active Substance: LEFLUNOMIDE
     Indication: RHEUMATOID ARTHRITIS
     Route: 065

REACTIONS (1)
  - Anal abscess [Recovered/Resolved]

NARRATIVE: CASE EVENT DATE: 20200806
